FAERS Safety Report 11086579 (Version 1)
Quarter: 2015Q2

REPORT INFORMATION
  Report Type: Report from Study
  Country: FR (occurrence: FR)
  Receive Date: 20150504
  Receipt Date: 20150504
  Transmission Date: 20150821
  Serious: Yes (Hospitalization, Other)
  Sender: FDA-Public Use
  Company Number: FR-ROCHE-1160618

PATIENT
  Age: 61 Year
  Sex: Female

DRUGS (10)
  1. CORTANCYL [Concomitant]
     Active Substance: PREDNISONE
     Route: 065
  2. CORTANCYL [Concomitant]
     Active Substance: PREDNISONE
     Route: 065
  3. CORTANCYL [Concomitant]
     Active Substance: PREDNISONE
     Route: 065
  4. METHOTREXATE [Concomitant]
     Active Substance: METHOTREXATE
     Dosage: 6 TABLETS/WEEK
     Route: 065
  5. METHOTREXATE [Concomitant]
     Active Substance: METHOTREXATE
     Dosage: 8 TABLETS/WEEK
     Route: 065
  6. LEFLUNOMIDE. [Concomitant]
     Active Substance: LEFLUNOMIDE
     Route: 065
  7. RITUXIMAB [Suspect]
     Active Substance: RITUXIMAB
     Indication: RHEUMATOID ARTHRITIS
     Route: 041
     Dates: start: 20070312
  8. BRICANYL [Concomitant]
     Active Substance: TERBUTALINE SULFATE
  9. CORTANCYL [Concomitant]
     Active Substance: PREDNISONE
     Route: 065
  10. INEXIUM [Concomitant]
     Active Substance: ESOMEPRAZOLE

REACTIONS (9)
  - Bronchopneumonia [Not Recovered/Not Resolved]
  - Paronychia [Recovering/Resolving]
  - Bicytopenia [Not Recovered/Not Resolved]
  - Metatarsal excision [Unknown]
  - Pyrexia [Not Recovered/Not Resolved]
  - Pneumonia [Unknown]
  - Arthrodesis [Unknown]
  - Respiratory distress [Unknown]
  - Obliterative bronchiolitis [Not Recovered/Not Resolved]

NARRATIVE: CASE EVENT DATE: 20070402
